FAERS Safety Report 4393441-2 (Version None)
Quarter: 2004Q3

REPORT INFORMATION
  Report Type: 
  Country: None (occurrence: None)
  Receive Date: 20040707
  Receipt Date: 20040707
  Transmission Date: 20050211
  Serious: No
  Sender: FDA-Public Use
  Company Number: None

PATIENT
  Age: 48 Year
  Sex: Female

DRUGS (4)
  1. AVELOX [Suspect]
     Indication: SINUSITIS
     Dosage: 400 MG PO QD
     Route: 048
     Dates: start: 20040622, end: 20040626
  2. ZYRTEC [Concomitant]
  3. IVOSIA [Concomitant]
  4. RHNOART [Concomitant]

REACTIONS (3)
  - ARTHRALGIA [None]
  - CONTUSION [None]
  - JOINT SWELLING [None]
